FAERS Safety Report 5879516-7 (Version None)
Quarter: 2008Q3

REPORT INFORMATION
  Report Type: 
  Country: None (occurrence: None)
  Receive Date: 20080912
  Receipt Date: 20080909
  Transmission Date: 20090109
  Serious: Yes (Death)
  Sender: FDA-Public Use
  Company Number: MX-ABBOTT-08P-107-0475481-01

PATIENT
  Sex: Male
  Weight: 88 kg

DRUGS (8)
  1. ZEMPLAR [Suspect]
     Indication: HYPERPARATHYROIDISM SECONDARY
     Route: 048
     Dates: start: 20080602, end: 20080829
  2. ATORVASTATIN [Concomitant]
     Indication: DYSLIPIDAEMIA
     Dates: start: 20020101
  3. ACETYLSALICYLIC ACID SRT [Concomitant]
     Indication: CARDIOVASCULAR EVENT PROPHYLAXIS
     Dates: start: 20051130
  4. EPLERENONE [Concomitant]
     Indication: CARDIOVASCULAR DISORDER
     Dates: start: 20080301
  5. FUROSEMIDE [Concomitant]
     Indication: DIURETIC THERAPY
     Dates: start: 20051130
  6. FUROSEMIDE [Concomitant]
     Indication: OEDEMA
  7. ENALAPRIL MALEATE [Concomitant]
     Indication: HYPERTENSION
     Dates: start: 20080711
  8. SEVELAMER [Concomitant]
     Indication: HYPERPHOSPHATAEMIA
     Dates: start: 20080101

REACTIONS (1)
  - ACUTE MYOCARDIAL INFARCTION [None]
